FAERS Safety Report 23440830 (Version 1)
Quarter: 2024Q1

REPORT INFORMATION
  Report Type: Spontaneous
  Country: US (occurrence: US)
  Receive Date: 20240125
  Receipt Date: 20240125
  Transmission Date: 20240410
  Serious: No
  Sender: FDA-Public Use
  Company Number: US-TEVA-VS-3141668

PATIENT

DRUGS (1)
  1. CYCLOSPORINE [Suspect]
     Active Substance: CYCLOSPORINE
     Indication: Anaemia
     Dosage: 2 CAPSULES WAS PRESCRIBED EARLIER AND NOW IT HAS BEEN REDUCED TO 1 CAPSULE
     Route: 065
     Dates: start: 202006

REACTIONS (1)
  - Drug ineffective [Unknown]
